FAERS Safety Report 9565202 (Version 1)
Quarter: 2013Q3

REPORT INFORMATION
  Report Type: Spontaneous
  Country: IT (occurrence: IT)
  Receive Date: 20130930
  Receipt Date: 20130930
  Transmission Date: 20140515
  Serious: Yes (Hospitalization)
  Sender: FDA-Public Use
  Company Number: IT-BAXTER-2013BAX037081

PATIENT
  Age: 72 Year
  Sex: Female
  Weight: 50 kg

DRUGS (5)
  1. ENDOXAN BAXTER [Suspect]
     Indication: PRODUCT USED FOR UNKNOWN INDICATION
     Dosage: 1200MG/KG BODY WEIGHT
     Route: 042
     Dates: start: 20130806, end: 20130806
  2. DOXORUBICIN [Suspect]
     Indication: PRODUCT USED FOR UNKNOWN INDICATION
     Dosage: 80MG/SQUARE METER BODY SURFACE
     Route: 042
     Dates: start: 20130806, end: 20130806
  3. VINCRISTINE [Suspect]
     Indication: PRODUCT USED FOR UNKNOWN INDICATION
     Dosage: 2MG/SQUARE METER BODY SURFACE
     Route: 042
     Dates: start: 20130806, end: 20130806
  4. RITUXIMAB [Suspect]
     Indication: PRODUCT USED FOR UNKNOWN INDICATION
     Dosage: 600MG/SQUARE METER BODY SURFACE
     Route: 042
     Dates: start: 20130813, end: 20130813
  5. ACICLOVIR [Concomitant]
     Indication: PRODUCT USED FOR UNKNOWN INDICATION

REACTIONS (3)
  - Confusional state [Unknown]
  - Mucosal inflammation [Unknown]
  - Renal failure acute [Unknown]
